FAERS Safety Report 12269280 (Version 4)
Quarter: 2016Q4

REPORT INFORMATION
  Report Type: Report from Study
  Country: AT (occurrence: AT)
  Receive Date: 20160414
  Receipt Date: 20161024
  Transmission Date: 20170207
  Serious: Yes (Hospitalization, Other)
  Sender: FDA-Public Use
  Company Number: AT-INCYTE CORPORATION-2016IN001147

PATIENT
  Age: 81 Year
  Sex: Male
  Weight: 80 kg

DRUGS (26)
  1. CONCOR [Concomitant]
     Active Substance: BISOPROLOL FUMARATE
  2. CANDEBLO PLUS [Concomitant]
  3. PRADAXA [Concomitant]
     Active Substance: DABIGATRAN ETEXILATE MESYLATE
  4. PLAVIX [Concomitant]
     Active Substance: CLOPIDOGREL BISULFATE
     Indication: PRODUCT USED FOR UNKNOWN INDICATION
     Dosage: 75 MG, QD
     Route: 065
  5. CANDEBLO PLUS [Concomitant]
  6. SIMVASTATIN. [Concomitant]
     Active Substance: SIMVASTATIN
     Dosage: 80 MG, QD
     Route: 065
  7. SPIRONO [Concomitant]
  8. TORASEMIDE [Concomitant]
     Active Substance: TORSEMIDE
     Indication: PRODUCT USED FOR UNKNOWN INDICATION
     Dosage: 5 MG, QD
     Route: 065
  9. SIMVASTATIN. [Concomitant]
     Active Substance: SIMVASTATIN
     Indication: PRODUCT USED FOR UNKNOWN INDICATION
     Dosage: 80 MG, QD
     Route: 065
  10. TORASEMIDE [Concomitant]
     Active Substance: TORSEMIDE
     Dosage: 5 MG, QD
     Route: 065
  11. CONCOR [Concomitant]
     Active Substance: BISOPROLOL FUMARATE
     Indication: PRODUCT USED FOR UNKNOWN INDICATION
     Dosage: 2.5 MG, BID
     Route: 065
  12. CANDEBLO PLUS [Concomitant]
     Indication: PRODUCT USED FOR UNKNOWN INDICATION
     Dosage: 8 MG, QD
     Route: 065
  13. UROSIN [Concomitant]
     Active Substance: ALLOPURINOL
  14. JAKAVI [Suspect]
     Active Substance: RUXOLITINIB
     Indication: MYELOFIBROSIS
     Dosage: 30 MG, QD
     Route: 048
     Dates: start: 20120221
  15. PRADAXA [Concomitant]
     Active Substance: DABIGATRAN ETEXILATE MESYLATE
     Indication: PRODUCT USED FOR UNKNOWN INDICATION
     Dosage: 110 MG, BID
     Route: 065
  16. PRADAXA [Concomitant]
     Active Substance: DABIGATRAN ETEXILATE MESYLATE
  17. PLAVIX [Concomitant]
     Active Substance: CLOPIDOGREL BISULFATE
  18. SPIRONO [Concomitant]
     Indication: PRODUCT USED FOR UNKNOWN INDICATION
     Dosage: 100 MG, QD
     Route: 065
  19. SPIRONO [Concomitant]
  20. UROSIN [Concomitant]
     Active Substance: ALLOPURINOL
     Indication: PRODUCT USED FOR UNKNOWN INDICATION
     Dosage: 300 MG, QD
     Route: 065
  21. NEUROMULTIVIT [Concomitant]
     Active Substance: CYANOCOBALAMIN\PYRIDOXINE\THIAMINE
     Indication: PRODUCT USED FOR UNKNOWN INDICATION
     Dosage: UNK UNK, TID
     Route: 065
  22. PLAVIX [Concomitant]
     Active Substance: CLOPIDOGREL BISULFATE
  23. TORASEMIDE [Concomitant]
     Active Substance: TORSEMIDE
     Dosage: 5 MG, QD
     Route: 065
  24. CONCOR [Concomitant]
     Active Substance: BISOPROLOL FUMARATE
  25. UROSIN [Concomitant]
     Active Substance: ALLOPURINOL
  26. SIMVASTATIN. [Concomitant]
     Active Substance: SIMVASTATIN
     Dosage: 80 MG, QD
     Route: 065

REACTIONS (25)
  - Basal cell carcinoma [Unknown]
  - Pulmonary valve incompetence [Unknown]
  - Periodontitis [Unknown]
  - Acute myocardial infarction [Recovered/Resolved]
  - Second primary malignancy [Unknown]
  - Chronic sinusitis [Unknown]
  - Anaemia [Unknown]
  - Osteitis [Unknown]
  - Aortic valve calcification [Unknown]
  - Pulmonary artery dilatation [Unknown]
  - Liver disorder [Unknown]
  - Inferior vena cava dilatation [Unknown]
  - Scoliosis [Unknown]
  - Pulmonary congestion [Unknown]
  - Mitral valve incompetence [Unknown]
  - Spinal osteoarthritis [Unknown]
  - Fall [Unknown]
  - Coronary artery stenosis [Unknown]
  - Arteriosclerosis coronary artery [Unknown]
  - Neoplasm malignant [Unknown]
  - Tricuspid valve incompetence [Unknown]
  - Hypertrophy [Unknown]
  - Hypoxia [Unknown]
  - Abscess oral [Unknown]
  - Aortic valve incompetence [Unknown]

NARRATIVE: CASE EVENT DATE: 20151014
